FAERS Safety Report 8584250 (Version 3)
Quarter: 2012Q4

REPORT INFORMATION
  Report Type: 
  Country: US (occurrence: US)
  Receive Date: 20120529
  Receipt Date: 20121025
  Transmission Date: 20130627
  Serious: Yes (Life-Threatening, Hospitalization, Other)
  Sender: FDA-Public Use
  Company Number: PHHY2012US044163

PATIENT
  Age: 46 Year
  Sex: Female

DRUGS (3)
  1. OXALIPLATIN [Suspect]
     Indication: CHEMOTHERAPY
     Dosage: 85 mg/m2, UNK
  2. FLUOROURACIL [Concomitant]
     Indication: CHEMOTHERAPY
     Dosage: 400 mg/m2, UNK
  3. LEUCOVORIN [Concomitant]
     Indication: CHEMOTHERAPY
     Dosage: 400 mg/m2, UNK

REACTIONS (6)
  - Hepatocellular injury [Recovered/Resolved]
  - Hepatic enzyme increased [Recovered/Resolved]
  - Ototoxicity [Recovered/Resolved]
  - Vertigo [Recovered/Resolved]
  - Tinnitus [Recovered/Resolved]
  - Nausea [Recovered/Resolved]
